FAERS Safety Report 6631331-2 (Version None)
Quarter: 2010Q1

REPORT INFORMATION
  Report Type: 
  Country: None (occurrence: None)
  Receive Date: 20100311
  Receipt Date: 20100311
  Transmission Date: 20100710
  Serious: Yes (Hospitalization)
  Sender: FDA-Public Use
  Company Number: None

PATIENT
  Age: 61 Year
  Sex: Male
  Weight: 118.6 kg

DRUGS (2)
  1. WARFARIN SODIUM [Suspect]
     Indication: ATRIAL FIBRILLATION
     Dosage: 1.25 MG EVERY DAY PO
     Route: 048
     Dates: start: 20091015
  2. AZITHROMYCIN [Suspect]
     Indication: BRONCHITIS
     Dosage: 250 MG EVERY DAY PO
     Route: 048
     Dates: start: 20100219, end: 20100223

REACTIONS (2)
  - EPISTAXIS [None]
  - HAEMORRHAGE [None]
